FAERS Safety Report 19415444 (Version 1)
Quarter: 2021Q2

REPORT INFORMATION
  Report Type: Other
  Country: JP (occurrence: JP)
  Receive Date: 20210614
  Receipt Date: 20210614
  Transmission Date: 20210717
  Serious: Yes (Other)
  Sender: FDA-Public Use
  Company Number: JP-ROCHE-2844436

PATIENT

DRUGS (8)
  1. CYCLOPHOSPHAMIDE. [Suspect]
     Active Substance: CYCLOPHOSPHAMIDE
     Dosage: IN HIGH?DOSE GLUCOCORTICOID GROUP AND WAS REDUCED TO A TOTAL OF 10 MG/D BY 5 MONTHS
     Route: 065
  2. MYCOPHENOLATE MOFETIL. [Suspect]
     Active Substance: MYCOPHENOLATE MOFETIL
     Indication: ANTI-NEUTROPHIL CYTOPLASMIC ANTIBODY POSITIVE VASCULITIS
     Route: 065
  3. CYCLOPHOSPHAMIDE. [Suspect]
     Active Substance: CYCLOPHOSPHAMIDE
     Indication: ANTI-NEUTROPHIL CYTOPLASMIC ANTIBODY POSITIVE VASCULITIS
     Dosage: IN REDUCED?DOSE GLUCOCORTICOID GROUP AND WAS STOPPED AT 5 MONTHS
     Route: 065
  4. PREDNISOLONE. [Suspect]
     Active Substance: PREDNISOLONE
     Indication: ANTI-NEUTROPHIL CYTOPLASMIC ANTIBODY POSITIVE VASCULITIS
     Dosage: IN REDUCED?DOSE GLUCOCORTICOID GROUP AND WAS STOPPED AT 5 MONTHS
     Route: 065
  5. PREDNISOLONE. [Suspect]
     Active Substance: PREDNISOLONE
     Dosage: IN HIGH?DOSE GLUCOCORTICOID GROUP AND WAS REDUCED TO A TOTAL OF 10 MG/D BY 5 MONTHS
     Route: 065
  6. AZATHIOPRINE. [Suspect]
     Active Substance: AZATHIOPRINE
     Indication: ANTI-NEUTROPHIL CYTOPLASMIC ANTIBODY POSITIVE VASCULITIS
     Dosage: IN REDUCED?DOSE GLUCOCORTICOID GROUP AND WAS STOPPED AT 5 MONTHS
     Route: 065
  7. AZATHIOPRINE. [Suspect]
     Active Substance: AZATHIOPRINE
     Dosage: IN HIGH?DOSE GLUCOCORTICOID GROUP AND WAS REDUCED TO A TOTAL OF 10 MG/D BY 5 MONTHS
     Route: 065
  8. RITUXIMAB. [Suspect]
     Active Substance: RITUXIMAB
     Indication: ANTI-NEUTROPHIL CYTOPLASMIC ANTIBODY POSITIVE VASCULITIS
     Route: 042

REACTIONS (7)
  - Infection [Unknown]
  - Aspergillus infection [Unknown]
  - Varicella [Unknown]
  - Pneumocystis jirovecii pneumonia [Unknown]
  - Colon cancer [Unknown]
  - Lung neoplasm malignant [Unknown]
  - Disseminated tuberculosis [Unknown]
